FAERS Safety Report 9865433 (Version 1)
Quarter: 2014Q1

REPORT INFORMATION
  Report Type: Spontaneous
  Country: US (occurrence: US)
  Receive Date: 20140203
  Receipt Date: 20140203
  Transmission Date: 20141002
  Serious: No
  Sender: FDA-Public Use
  Company Number: US-ALLERGAN-1308127US

PATIENT
  Age: 54 Year
  Sex: Female

DRUGS (2)
  1. RESTASIS [Suspect]
     Indication: DRY EYE
     Dosage: UNK
     Dates: start: 201209, end: 201212
  2. MURO128 [Concomitant]
     Indication: DRY EYE
     Dosage: UNK, QHS
     Route: 047
     Dates: start: 201210, end: 201305

REACTIONS (1)
  - Ocular hyperaemia [Unknown]
